FAERS Safety Report 17124743 (Version 2)
Quarter: 2020Q1

REPORT INFORMATION
  Report Type: Spontaneous
  Country: US (occurrence: US)
  Receive Date: 20191206
  Receipt Date: 20200110
  Transmission Date: 20200409
  Serious: No
  Sender: FDA-Public Use
  Company Number: US-SA-2019SA338744

PATIENT
  Age: 55 Year
  Sex: Male

DRUGS (1)
  1. DUPIXENT [Suspect]
     Active Substance: DUPILUMAB
     Indication: DERMATITIS ATOPIC
     Dosage: 1 DF, QOW
     Route: 058
     Dates: start: 20191119

REACTIONS (2)
  - Rash [Unknown]
  - Sleep disorder [Unknown]

NARRATIVE: CASE EVENT DATE: 2019
